FAERS Safety Report 6179789-X (Version None)
Quarter: 2009Q2

REPORT INFORMATION
  Report Type: 
  Country: None (occurrence: None)
  Receive Date: 20090505
  Receipt Date: 20090424
  Transmission Date: 20091009
  Serious: Yes (Other)
  Sender: FDA-Public Use
  Company Number: JP-PFIZER INC-2009161348

PATIENT

DRUGS (2)
  1. SALAZOPYRIN [Suspect]
     Indication: COLITIS ULCERATIVE
     Dosage: 1000 MG, 3X/DAY
     Route: 048
     Dates: start: 19950427, end: 20090119
  2. MIYARI BACTERIA [Concomitant]
     Dates: start: 20050629

REACTIONS (1)
  - DRY MOUTH [None]
